FAERS Safety Report 18822692 (Version 3)
Quarter: 2021Q2

REPORT INFORMATION
  Report Type: Report from Study
  Country: PE (occurrence: PE)
  Receive Date: 20210202
  Receipt Date: 20210406
  Transmission Date: 20210717
  Serious: Yes (Death, Life-Threatening, Other)
  Sender: FDA-Public Use
  Company Number: PE-SEAGEN-2020SGN05685

PATIENT
  Age: 44 Year
  Sex: Male
  Weight: 76 kg

DRUGS (1)
  1. BRENTUXIMAB VEDOTIN [Suspect]
     Active Substance: BRENTUXIMAB VEDOTIN
     Indication: HODGKIN^S DISEASE
     Dosage: 137 MILLIGRAM, Q3WEEKS
     Route: 042
     Dates: start: 20201026

REACTIONS (9)
  - Swollen tongue [Recovered/Resolved]
  - Hodgkin^s disease [Unknown]
  - Pulmonary mass [Unknown]
  - Injection site erythema [Recovered/Resolved]
  - Death [Fatal]
  - Lip swelling [Recovered/Resolved]
  - Blood pressure increased [Recovered/Resolved]
  - Hypersensitivity [Recovered/Resolved]
  - Drug hypersensitivity [Recovered/Resolved]

NARRATIVE: CASE EVENT DATE: 20201216
